FAERS Safety Report 8934289 (Version 2)
Quarter: 2012Q4

REPORT INFORMATION
  Report Type: 
  Country: ES (occurrence: ES)
  Receive Date: 20121129
  Receipt Date: 20121210
  Transmission Date: 20130627
  Serious: Yes (Death, Hospitalization)
  Sender: FDA-Public Use
  Company Number: ES-PFIZER INC-2012294292

PATIENT
  Age: 70 Year
  Sex: Male

DRUGS (3)
  1. FARMORUBICINA [Suspect]
     Indication: ESOPHAGEAL CARCINOMA
     Dosage: 84 mg, cyclic
     Route: 042
     Dates: start: 20120507
  2. OXALIPLATINO [Suspect]
     Indication: ESOPHAGEAL CARCINOMA
     Dosage: 218 mg, cyclic
     Route: 042
     Dates: start: 20120507
  3. XELODA [Suspect]
     Indication: ESOPHAGEAL CARCINOMA
     Dosage: UNK
     Route: 048
     Dates: start: 20120507

REACTIONS (7)
  - Radiation mucositis [Fatal]
  - Thrombocytopenia [Fatal]
  - Vomiting [Fatal]
  - Diarrhoea [Fatal]
  - Hyponatraemia [Fatal]
  - Neutropenia [Fatal]
  - Renal failure [Fatal]
